FAERS Safety Report 6220743-7 (Version None)
Quarter: 2009Q2

REPORT INFORMATION
  Report Type: 
  Country: None (occurrence: None)
  Receive Date: 20090610
  Receipt Date: 20090602
  Transmission Date: 20091009
  Serious: Yes (Other)
  Sender: FDA-Public Use
  Company Number: PHBS2007ZA08587

PATIENT
  Weight: 46 kg

DRUGS (2)
  1. EXJADE [Suspect]
     Indication: IRON OVERLOAD
     Dosage: 1000 MG, QD
     Route: 065
     Dates: start: 20070421, end: 20070506
  2. EXJADE [Suspect]
     Indication: THALASSAEMIA BETA
     Dosage: 500 MG, QD
     Route: 065

REACTIONS (10)
  - CHEST DISCOMFORT [None]
  - ERYTHEMA [None]
  - LIP SWELLING [None]
  - ORAL DISORDER [None]
  - PRURITUS [None]
  - PYREXIA [None]
  - RASH [None]
  - RASH GENERALISED [None]
  - SWELLING FACE [None]
  - URTICARIA [None]
